FAERS Safety Report 4274480-9 (Version None)
Quarter: 2004Q1

REPORT INFORMATION
  Report Type: 
  Country: None (occurrence: None)
  Receive Date: 20040120
  Receipt Date: 20040120
  Transmission Date: 20041129
  Serious: Yes (Other)
  Sender: FDA-Public Use
  Company Number: None

PATIENT
  Age: 7 Year
  Sex: Female

DRUGS (1)
  1. CORNEA TISSUE [Suspect]

REACTIONS (2)
  - COMPLICATIONS OF TRANSPLANT SURGERY [None]
  - EYEBALL RUPTURE [None]
